FAERS Safety Report 19624170 (Version 1)
Quarter: 2021Q3

REPORT INFORMATION
  Report Type: Report from Study
  Country: US (occurrence: US)
  Receive Date: 20210728
  Receipt Date: 20210728
  Transmission Date: 20211014
  Serious: Yes (Hospitalization)
  Sender: FDA-Public Use
  Company Number: US-BAYER-2021-181070

PATIENT
  Age: 26 Year
  Sex: Female
  Weight: 35.83 kg

DRUGS (3)
  1. ELIQUIS [Concomitant]
     Active Substance: APIXABAN
  2. ADEMPAS [Suspect]
     Active Substance: RIOCIGUAT
     Indication: PULMONARY ARTERIAL HYPERTENSION
     Dosage: 1.5 MG, TID
     Route: 048
  3. ADEMPAS [Suspect]
     Active Substance: RIOCIGUAT
     Indication: PULMONARY ARTERIAL HYPERTENSION
     Dosage: UNK
     Route: 048
     Dates: start: 20191011

REACTIONS (4)
  - Weight decreased [Recovered/Resolved]
  - Gastrointestinal disorder [None]
  - Gastrointestinal disorder [Recovered/Resolved]
  - Weight decreased [None]

NARRATIVE: CASE EVENT DATE: 20210710
